FAERS Safety Report 12067594 (Version 2)
Quarter: 2016Q1

REPORT INFORMATION
  Report Type: Other
  Country: DE (occurrence: DE)
  Receive Date: 20160211
  Receipt Date: 20160216
  Transmission Date: 20160526
  Serious: Yes (Other)
  Sender: FDA-Public Use
  Company Number: DE-VERTEX PHARMACEUTICALS-2016-000714

PATIENT
  Age: 46 Year
  Sex: Male
  Weight: 58 kg

DRUGS (14)
  1. CAYSTON [Concomitant]
     Active Substance: AZTREONAM
     Dosage: 3X1 AMPOULE
     Route: 055
  2. PULMOZYME [Concomitant]
     Active Substance: DORNASE ALFA
     Dosage: 2 DF, UNK
     Route: 055
  3. ORKAMBI [Suspect]
     Active Substance: IVACAFTOR\LUMACAFTOR
     Indication: CYSTIC FIBROSIS
     Dosage: 400MG/250MG, BID
     Route: 048
     Dates: start: 20160122, end: 20160124
  4. KREON 25000 [Concomitant]
     Active Substance: PANCRELIPASE
     Dosage: AS REQUIRED
  5. VIGANTOLETTEN [Concomitant]
     Active Substance: CHOLECALCIFEROL
     Dosage: 1000 IU, UNK
  6. SULTANOL [Concomitant]
     Active Substance: ALBUTEROL SULFATE
     Dosage: 10GTT DROP
  7. ZITHROMAX [Concomitant]
     Active Substance: AZITHROMYCIN DIHYDRATE
     Dosage: 1500 MG, EVERY WEEK
  8. FORMATRIS [Concomitant]
     Dosage: 12 ?G, UNK
     Route: 055
  9. NACL [Concomitant]
     Active Substance: SODIUM CHLORIDE
     Dosage: 2-3 TIMES DAILY
     Route: 055
  10. SULTANOL [Concomitant]
     Active Substance: ALBUTEROL SULFATE
     Dosage: 2 PUFFS ALTERNATIVE TO SULTANOL DROPS
     Route: 055
  11. FLUIMUCIL [Concomitant]
     Active Substance: ACETYLCYSTEINE
     Dosage: 2X1
  12. CITALOPRAM [Concomitant]
     Active Substance: CITALOPRAM HYDROBROMIDE
     Dosage: 20 MG, UNK
  13. SPIRIVA [Concomitant]
     Active Substance: TIOTROPIUM BROMIDE MONOHYDRATE
     Dosage: 1 DF, EVERY MORNING
     Route: 055
  14. URSOFALK [Concomitant]
     Active Substance: URSODIOL
     Dosage: 1000 MG, QD

REACTIONS (4)
  - Pyrexia [Not Recovered/Not Resolved]
  - Pneumonia [Not Recovered/Not Resolved]
  - Dyspnoea [Not Recovered/Not Resolved]
  - Oxygen supplementation [Not Recovered/Not Resolved]

NARRATIVE: CASE EVENT DATE: 20160125
